FAERS Safety Report 8286565-0 (Version None)
Quarter: 2012Q2

REPORT INFORMATION
  Report Type: 
  Country: None (occurrence: None)
  Receive Date: 20120416
  Receipt Date: 20120409
  Transmission Date: 20120825
  Serious: Yes (Hospitalization, Other)
  Sender: FDA-Public Use
  Company Number: US-BAYER-2011-091160

PATIENT
  Sex: Female
  Weight: 125 kg

DRUGS (5)
  1. MULTI-VITAMINS [Concomitant]
     Dosage: 1 TABLET DAILY
     Route: 048
  2. ZOLOFT [Concomitant]
     Dosage: 50 MG, QD
     Route: 048
  3. YASMIN [Suspect]
     Dosage: UNK
     Dates: start: 20061201, end: 20090901
  4. YASMIN [Suspect]
     Indication: PREMENSTRUAL SYNDROME
     Dosage: UNK
     Dates: start: 20070501, end: 20070701
  5. ZOFRAN [Concomitant]
     Indication: NAUSEA
     Dosage: 4 MG, Q4HR
     Route: 048

REACTIONS (11)
  - GENERAL PHYSICAL HEALTH DETERIORATION [None]
  - GALLBLADDER DISORDER [None]
  - PAIN [None]
  - PREGNANCY [None]
  - POST PROCEDURAL SEPSIS [None]
  - CHOLECYSTITIS CHRONIC [None]
  - INJURY [None]
  - ANXIETY [None]
  - EMOTIONAL DISTRESS [None]
  - CHOLECYSTECTOMY [None]
  - ANHEDONIA [None]
